FAERS Safety Report 9283576 (Version 1)
Quarter: 2013Q2

REPORT INFORMATION
  Report Type: Spontaneous
  Country: DE (occurrence: None)
  Receive Date: 20130424
  Receipt Date: 20130424
  Transmission Date: 20140414
  Serious: Yes (Other)
  Sender: FDA-Public Use
  Company Number: ALB-004-13-DE

PATIENT
  Age: 55 Year
  Sex: Female

DRUGS (1)
  1. ALBUNORN 20% (HUMAN ALBUMIN) [Suspect]
     Indication: ASCITES
     Dosage: 60 ML (1X 1 / D)  INTRAVENOUS (NOT OTHERWISE SPECIFIED)
     Dates: start: 20130330, end: 20130330

REACTIONS (3)
  - Rash [None]
  - Pruritus [None]
  - Rash pustular [None]
